FAERS Safety Report 23465606 (Version 6)
Quarter: 2024Q4

REPORT INFORMATION
  Report Type: Spontaneous
  Country: US (occurrence: US)
  Receive Date: 20240201
  Receipt Date: 20241226
  Transmission Date: 20250115
  Serious: Yes (Other)
  Sender: SANOFI AVENTIS
  Company Number: US-SA-SAC20240131001043

PATIENT
  Age: 63 Year
  Sex: Female

DRUGS (2)
  1. KEVZARA [Suspect]
     Active Substance: SARILUMAB
     Indication: Rheumatoid arthritis
     Dosage: 200 MG, QOW
     Route: 058
     Dates: start: 202304
  2. PRAVASTATIN [Suspect]
     Active Substance: PRAVASTATIN
     Indication: Blood cholesterol
     Dosage: UNKNOWN

REACTIONS (7)
  - Rheumatoid arthritis [Unknown]
  - Joint swelling [Unknown]
  - Arthralgia [Unknown]
  - Osteoarthritis [Unknown]
  - Limb discomfort [Unknown]
  - Feeling abnormal [Unknown]
  - Drug ineffective [Unknown]

NARRATIVE: CASE EVENT DATE: 20230701
